FAERS Safety Report 6522527-9 (Version None)
Quarter: 2009Q4

REPORT INFORMATION
  Report Type: 
  Country: None (occurrence: None)
  Receive Date: 20091230
  Receipt Date: 20091217
  Transmission Date: 20100525
  Serious: Yes (Hospitalization)
  Sender: FDA-Public Use
  Company Number: FR-AMGEN-US254283

PATIENT
  Sex: Female

DRUGS (12)
  1. ENBREL [Suspect]
     Indication: PSORIATIC ARTHROPATHY
     Route: 058
     Dates: start: 20020601
  2. PANENZA [Suspect]
     Indication: IMMUNISATION
     Route: 065
     Dates: start: 20091124, end: 20091124
  3. CORTISONE [Suspect]
     Route: 065
     Dates: start: 20081128, end: 20081128
  4. FLUDEX [Concomitant]
     Indication: HYPERTENSION
     Dosage: UNKNOWN
     Route: 065
     Dates: start: 20050101
  5. DILTIAZEM [Concomitant]
     Indication: HYPERTENSION
     Dosage: UNKNOWN
     Route: 065
  6. HYPERIUM [Concomitant]
     Indication: HYPERTENSION
     Dosage: UNKNOWN
     Route: 065
  7. ATACAND [Concomitant]
     Indication: HYPERTENSION
     Dosage: UNKNOWN
     Route: 065
     Dates: start: 20090601
  8. ALDACTONE [Concomitant]
     Indication: HYPERTENSION
     Dosage: UNKNOWN
     Route: 065
  9. LANZOR [Concomitant]
     Dosage: UNKNOWN
     Route: 065
     Dates: end: 20091201
  10. IDEOS [Concomitant]
     Dosage: UNKNOWN
     Route: 065
     Dates: end: 20091201
  11. DAFLON [Concomitant]
     Dosage: UNKNOWN
     Route: 065
     Dates: end: 20091201
  12. VOLTAREN [Concomitant]
     Dosage: 75 MG TOTAL DAILY
     Route: 048
     Dates: end: 20091201

REACTIONS (13)
  - ARTHRALGIA [None]
  - ASTHENIA [None]
  - CONDITION AGGRAVATED [None]
  - DRUG EFFECT DELAYED [None]
  - ECCHYMOSIS [None]
  - FALL [None]
  - HYPERTENSION [None]
  - INJECTION SITE ERYTHEMA [None]
  - INJECTION SITE INDURATION [None]
  - INJECTION SITE MASS [None]
  - INJECTION SITE WARMTH [None]
  - PRURITUS GENERALISED [None]
  - SYNCOPE [None]
